FAERS Safety Report 15880828 (Version 3)
Quarter: 2020Q2

REPORT INFORMATION
  Report Type: Spontaneous
  Country: DE (occurrence: DE)
  Receive Date: 20190128
  Receipt Date: 20200408
  Transmission Date: 20200713
  Serious: Yes (Death, Hospitalization)
  Sender: FDA-Public Use
  Company Number: DE-MALLINCKRODT-T201705329

PATIENT
  Age: 44 Year
  Sex: Female
  Weight: 65 kg

DRUGS (64)
  1. EXALGO [Suspect]
     Active Substance: HYDROMORPHONE HYDROCHLORIDE
     Dosage: 4 MG, TID
     Route: 048
     Dates: start: 20180516
  2. ZOFRAN [Concomitant]
     Active Substance: ONDANSETRON HYDROCHLORIDE
     Indication: METASTATIC MALIGNANT MELANOMA
     Dosage: 8 MG, BID
     Route: 048
     Dates: start: 20161115, end: 20170307
  3. CIPRALEX [Concomitant]
     Active Substance: ESCITALOPRAM OXALATE
     Indication: DEPRESSION
     Dosage: 10 MG, QD
     Route: 048
     Dates: start: 20170518, end: 20180228
  4. DEXAMETHASONE. [Concomitant]
     Active Substance: DEXAMETHASONE
     Indication: MALIGNANT MELANOMA
     Dosage: 4 MILLIGRAM, QD
     Route: 048
     Dates: start: 20170829, end: 20171128
  5. NOVAMINOSULFON [Concomitant]
     Active Substance: METAMIZOLE SODIUM
     Indication: MALIGNANT MELANOMA
     Dosage: 500 MILLIGRAM, PRN
     Route: 048
     Dates: start: 20161115, end: 20170406
  6. EXALGO [Suspect]
     Active Substance: HYDROMORPHONE HYDROCHLORIDE
     Dosage: 8 MG, TID
     Route: 048
     Dates: start: 20180225, end: 20180225
  7. TRAMETINIB [Suspect]
     Active Substance: TRAMETINIB
     Indication: METASTATIC MALIGNANT MELANOMA
     Dosage: 2 MG, QD
     Route: 048
     Dates: start: 20161019, end: 20161114
  8. ZOFRAN [Concomitant]
     Active Substance: ONDANSETRON HYDROCHLORIDE
     Dosage: 8 MG, PRN
     Route: 048
     Dates: start: 20170308, end: 20180225
  9. ZOFRAN [Concomitant]
     Active Substance: ONDANSETRON HYDROCHLORIDE
     Dosage: 4 MG, BID
     Route: 048
     Dates: start: 20180226, end: 20180226
  10. MCP [Concomitant]
     Active Substance: METOCLOPRAMIDE HYDROCHLORIDE
     Dosage: 10 MILLIGRAM, TID
     Route: 048
     Dates: end: 20180224
  11. PREGABA [Concomitant]
     Active Substance: PREGABALIN
     Dosage: 75 MG, BID
     Route: 048
     Dates: start: 20170906, end: 20180224
  12. PREGABA [Concomitant]
     Active Substance: PREGABALIN
     Dosage: 100 MG, QD
     Route: 048
     Dates: start: 20180225
  13. CELEBREX [Concomitant]
     Active Substance: CELECOXIB
     Indication: PRODUCT USED FOR UNKNOWN INDICATION
     Dosage: 100 MG, QD
     Route: 048
     Dates: start: 20180302
  14. EXALGO [Suspect]
     Active Substance: HYDROMORPHONE HYDROCHLORIDE
     Indication: PAIN
     Dosage: 4 MG, BID
     Route: 048
     Dates: start: 20170407, end: 20170706
  15. TAFINLAR [Suspect]
     Active Substance: DABRAFENIB MESYLATE
     Dosage: 150 MG, BID
     Route: 048
     Dates: start: 20161117, end: 20161122
  16. ZOFRAN [Concomitant]
     Active Substance: ONDANSETRON HYDROCHLORIDE
     Dosage: 4 MG, QID
     Route: 048
     Dates: start: 20180302, end: 20180302
  17. ZOFRAN [Concomitant]
     Active Substance: ONDANSETRON HYDROCHLORIDE
     Dosage: 4 MG, QD
     Route: 048
     Dates: start: 20180303, end: 20180303
  18. DEXAMETHASONE. [Concomitant]
     Active Substance: DEXAMETHASONE
     Dosage: 8 MILLIGRAM, TID
     Route: 042
     Dates: start: 20180226, end: 20180301
  19. BETAHISTINE HYDROCHLORIDE [Concomitant]
     Active Substance: BETAHISTINE HYDROCHLORIDE
     Dosage: 6 MG, BID
     Route: 048
     Dates: start: 20180226, end: 20180226
  20. NIVOLUMAB [Concomitant]
     Active Substance: NIVOLUMAB
     Indication: MALIGNANT MELANOMA
     Dosage: 1 MG/KG,1 IN 3 WK
     Route: 042
     Dates: start: 20181024, end: 20181024
  21. BIFITERAL [Concomitant]
     Active Substance: LACTULOSE
     Indication: PRODUCT USED FOR UNKNOWN INDICATION
     Dosage: 10 GRAM, QD
     Route: 048
     Dates: start: 20180225, end: 20180225
  22. BISACODYL. [Concomitant]
     Active Substance: BISACODYL
     Indication: PRODUCT USED FOR UNKNOWN INDICATION
     Dosage: 15 GTT DROPS, QD
     Route: 065
     Dates: start: 20180225, end: 20180303
  23. NOVAMINOSULFON [Concomitant]
     Active Substance: METAMIZOLE SODIUM
     Dosage: 1000 MILLIGRAM, TID
     Route: 048
     Dates: start: 20170829
  24. NOVAMINOSULFON [Concomitant]
     Active Substance: METAMIZOLE SODIUM
     Dosage: 1000 MILLIGRAM, QD
     Route: 048
     Dates: start: 20170917, end: 20170917
  25. PALLADON [Concomitant]
     Active Substance: HYDROMORPHONE
     Indication: METASTATIC MALIGNANT MELANOMA
     Dosage: 1.3 MG, PRN
     Route: 048
     Dates: start: 20170407
  26. MOVICOL [Concomitant]
     Active Substance: POLYETHYLENE GLYCOL 3350\POTASSIUM CHLORIDE\SODIUM BICARBONATE\SODIUM CHLORIDE
     Indication: PRODUCT USED FOR UNKNOWN INDICATION
     Dosage: 13.81 GRAM, QD
     Route: 048
     Dates: start: 20170829, end: 20171128
  27. PANTOPRAZOLE [Concomitant]
     Active Substance: PANTOPRAZOLE
     Indication: METASTATIC MALIGNANT MELANOMA
     Dosage: 40 MG, QD
     Route: 048
     Dates: start: 20170829
  28. DEXAMETHASONE. [Concomitant]
     Active Substance: DEXAMETHASONE
     Dosage: 8 MILLIGRAM, QD
     Route: 042
     Dates: start: 20180225, end: 20180225
  29. DEXAMETHASONE. [Concomitant]
     Active Substance: DEXAMETHASONE
     Dosage: 4 MILLIGRAM, BID
     Route: 048
     Dates: start: 20180304, end: 20180318
  30. IPILIMUMAB [Concomitant]
     Active Substance: IPILIMUMAB
     Indication: MALIGNANT MELANOMA
     Dosage: 3 MILLIGRAM/KILOGRAM (ONE IN 3 WEEKS)
     Route: 042
     Dates: start: 20181024, end: 20181024
  31. NOVAMINOSULFON [Concomitant]
     Active Substance: METAMIZOLE SODIUM
     Dosage: 100 MILLIGRAM, BID
     Route: 048
     Dates: start: 20170917, end: 20170917
  32. NOVAMINOSULFON [Concomitant]
     Active Substance: METAMIZOLE SODIUM
     Dosage: 3 GRAM, QD
     Route: 048
     Dates: start: 20180516
  33. EXALGO [Suspect]
     Active Substance: HYDROMORPHONE HYDROCHLORIDE
     Dosage: 8 MG, TID
     Route: 048
     Dates: start: 20180226
  34. TRAMETINIB [Suspect]
     Active Substance: TRAMETINIB
     Dosage: 2 MG, QD
     Route: 048
     Dates: start: 20161123, end: 20180513
  35. TAFINLAR [Suspect]
     Active Substance: DABRAFENIB MESYLATE
     Indication: METASTATIC MALIGNANT MELANOMA
     Dosage: 150 MG, BID
     Route: 048
     Dates: start: 20161019, end: 20161114
  36. TAFINLAR [Suspect]
     Active Substance: DABRAFENIB MESYLATE
     Dosage: 150 MG, BID
     Route: 048
     Dates: start: 20161123, end: 20180513
  37. ZOFRAN [Concomitant]
     Active Substance: ONDANSETRON HYDROCHLORIDE
     Dosage: 8 MG, TID
     Route: 048
     Dates: start: 20180312
  38. LAXOBERAL [Concomitant]
     Active Substance: SODIUM PICOSULFATE
     Indication: METASTATIC MALIGNANT MELANOMA
     Dosage: 20 GTT, QD
     Route: 048
     Dates: start: 20170407, end: 20180225
  39. LAXOBERAL [Concomitant]
     Active Substance: SODIUM PICOSULFATE
     Dosage: 20 GTT, UNK
     Route: 048
     Dates: start: 20180516
  40. MCP [Concomitant]
     Active Substance: METOCLOPRAMIDE HYDROCHLORIDE
     Indication: MALIGNANT MELANOMA
     Dosage: 5 MILLIGRAM, BID
     Route: 048
     Dates: start: 20180226, end: 20180226
  41. PREGABA [Concomitant]
     Active Substance: PREGABALIN
     Dosage: 75 MILLIGRAM, BID
     Route: 048
     Dates: start: 20180225
  42. IBUPROFEN. [Concomitant]
     Active Substance: IBUPROFEN
     Indication: METASTATIC MALIGNANT MELANOMA
     Dosage: 600 MG, QD
     Route: 048
     Dates: start: 20170214, end: 20170406
  43. DEXAMETHASONE. [Concomitant]
     Active Substance: DEXAMETHASONE
     Dosage: 4 MILLIGRAM, QD
     Route: 048
     Dates: start: 20171129
  44. BETAHISTINE HYDROCHLORIDE [Concomitant]
     Active Substance: BETAHISTINE HYDROCHLORIDE
     Indication: PRODUCT USED FOR UNKNOWN INDICATION
     Dosage: 6 MG, TID
     Route: 048
     Dates: start: 20180225, end: 20180225
  45. MCP [Concomitant]
     Active Substance: METOCLOPRAMIDE HYDROCHLORIDE
     Dosage: 5 MILLIGRAM, TID
     Route: 048
     Dates: start: 20180227, end: 20180227
  46. MCP [Concomitant]
     Active Substance: METOCLOPRAMIDE HYDROCHLORIDE
     Dosage: 10 MILLIGRAM, TID
     Route: 048
     Dates: start: 20170118, end: 20180224
  47. MCP [Concomitant]
     Active Substance: METOCLOPRAMIDE HYDROCHLORIDE
     Dosage: 10 MILLIGRAM, TID
     Route: 048
     Dates: start: 20180228, end: 20180303
  48. PREGABA [Concomitant]
     Active Substance: PREGABALIN
     Indication: DEPRESSED MOOD
     Dosage: 75 MG, QD
     Route: 048
     Dates: start: 20170829, end: 20170905
  49. DEXAMETHASONE. [Concomitant]
     Active Substance: DEXAMETHASONE
     Indication: INTRACRANIAL PRESSURE INCREASED
     Dosage: 4 MILLIGRAM, TID
     Route: 048
     Dates: start: 20180302, end: 20180303
  50. DEXAMETHASONE. [Concomitant]
     Active Substance: DEXAMETHASONE
     Dosage: 20 MG, QD
     Route: 042
     Dates: start: 20180225, end: 20180225
  51. CLEXANE [Concomitant]
     Active Substance: ENOXAPARIN SODIUM
     Indication: PRODUCT USED FOR UNKNOWN INDICATION
     Dosage: 40 MG, QD
     Route: 058
     Dates: start: 20180226, end: 20180303
  52. MIRTAZAPINE. [Concomitant]
     Active Substance: MIRTAZAPINE
     Indication: PRODUCT USED FOR UNKNOWN INDICATION
     Dosage: 15 MILLIGRAM, QD
     Route: 048
     Dates: start: 20170920, end: 20170922
  53. EXALGO [Suspect]
     Active Substance: HYDROMORPHONE HYDROCHLORIDE
     Indication: MALIGNANT MELANOMA
     Dosage: 4 MG, TID
     Route: 048
     Dates: start: 20170707, end: 20180224
  54. TRAMETINIB [Suspect]
     Active Substance: TRAMETINIB
     Dosage: 2 MG, QD
     Route: 048
     Dates: start: 20161117, end: 20161122
  55. CIPRALEX [Concomitant]
     Active Substance: ESCITALOPRAM OXALATE
     Dosage: 10 MG, QD
     Route: 048
     Dates: start: 20180312
  56. PREGABA [Concomitant]
     Active Substance: PREGABALIN
     Dosage: 150 MG, QD
     Route: 048
     Dates: start: 20171129
  57. METHOCARBAMOL. [Concomitant]
     Active Substance: METHOCARBAMOL
     Indication: PRODUCT USED FOR UNKNOWN INDICATION
     Dosage: 750 MILLIGRAM, TID, PRN
     Route: 048
     Dates: start: 20180516
  58. NOVAMINOSULFON [Concomitant]
     Active Substance: METAMIZOLE SODIUM
     Dosage: 100 MILLIGRAM, TID
     Route: 048
     Dates: start: 20170407, end: 20170916
  59. TAFINLAR [Suspect]
     Active Substance: DABRAFENIB MESYLATE
     Dosage: 150 MG, BID (2 IN 1 DAY)
     Route: 048
     Dates: start: 20161117, end: 20180513
  60. ZOFRAN [Concomitant]
     Active Substance: ONDANSETRON HYDROCHLORIDE
     Dosage: 4 MILLIGRAM, TID
     Route: 048
     Dates: start: 20180227, end: 20180302
  61. TILIDIN [Concomitant]
     Active Substance: NALOXONE HYDROCHLORIDE\TILIDINE HYDROCHLORIDE
     Indication: PRODUCT USED FOR UNKNOWN INDICATION
     Dosage: 50 MG, PRN
     Route: 048
     Dates: start: 20161115, end: 20170406
  62. PEMBROLIZUMAB. [Concomitant]
     Active Substance: PEMBROLIZUMAB
     Indication: MALIGNANT MELANOMA
     Dosage: 2 MILLIGRAM/KILOGRAM, QD
     Route: 048
     Dates: start: 20180517, end: 20181002
  63. BIFITERAL [Concomitant]
     Active Substance: LACTULOSE
     Dosage: 10 GRAM, QD
     Route: 048
     Dates: start: 20180312
  64. ABSTRAL [Concomitant]
     Active Substance: FENTANYL CITRATE
     Indication: MALIGNANT MELANOMA
     Dosage: UNK, (200 MCG,4 IN 1 D)
     Route: 048
     Dates: start: 20180516

REACTIONS (10)
  - Metastatic malignant melanoma [Fatal]
  - Constipation [Unknown]
  - Malignant neoplasm progression [Fatal]
  - Nausea [Unknown]
  - Myalgia [Not Recovered/Not Resolved]
  - Intracranial pressure increased [Recovered/Resolved]
  - Ageusia [Not Recovered/Not Resolved]
  - Arthralgia [Not Recovered/Not Resolved]
  - Abdominal pain [Recovered/Resolved]
  - Dry skin [Not Recovered/Not Resolved]

NARRATIVE: CASE EVENT DATE: 20170829
